FAERS Safety Report 9671058 (Version 1)
Quarter: 2013Q4

REPORT INFORMATION
  Report Type: Spontaneous
  Country: CH (occurrence: CH)
  Receive Date: 20131106
  Receipt Date: 20131106
  Transmission Date: 20140711
  Serious: Yes (Other)
  Sender: FDA-Public Use
  Company Number: CH-TEVA-439974ISR

PATIENT
  Age: 0 Year
  Sex: Female
  Weight: 2.18 kg

DRUGS (5)
  1. IBUPROFEN [Suspect]
     Indication: PRODUCT USED FOR UNKNOWN INDICATION
     Dosage: 600 MILLIGRAM DAILY; THE EXACT END DATE OF THERAPY IS NOT KNOWN (SINCE DIAGNOSIS OF THE PREGNANCY)
     Route: 064
     Dates: start: 2012
  2. LIORESAL [Suspect]
     Indication: COMPLEX REGIONAL PAIN SYNDROME
     Dosage: 15 MILLIGRAM DAILY; PROGRESSIVE DISCONTINUATION OVER SEVERAL DAYS
     Route: 064
     Dates: start: 2012, end: 20121115
  3. NEURONTIN [Suspect]
     Indication: COMPLEX REGIONAL PAIN SYNDROME
     Dosage: 3 DOSAGE FORMS DAILY; DOSE REGIMEN: 600 MG - 400 MG - 600 MG/ DAY
     Route: 064
     Dates: start: 2012
  4. DAFALGAN 1 G [Suspect]
     Indication: PRODUCT USED FOR UNKNOWN INDICATION
     Dosage: 3 GRAM DAILY;
     Route: 064
     Dates: start: 2012
  5. FOLIC ACID [Concomitant]
     Indication: PRODUCT USED FOR UNKNOWN INDICATION
     Route: 064
     Dates: start: 20121030

REACTIONS (2)
  - Foetal growth restriction [Unknown]
  - Exposure during pregnancy [Recovered/Resolved]
